FAERS Safety Report 7022198-1 (Version None)
Quarter: 2010Q3

REPORT INFORMATION
  Report Type: 
  Country: None (occurrence: None)
  Receive Date: 20100930
  Receipt Date: 20100922
  Transmission Date: 20110219
  Serious: Yes (Other)
  Sender: FDA-Public Use
  Company Number: US-JNJFOC-20100907832

PATIENT
  Age: 19 Year
  Sex: Female
  Weight: 49.9 kg

DRUGS (2)
  1. ORTHO EVRA [Suspect]
     Indication: CONTRACEPTION
     Route: 062
  2. TYLENOL W/ CODEINE NO. 3 [Suspect]
     Indication: PRODUCT USED FOR UNKNOWN INDICATION
     Route: 065

REACTIONS (7)
  - AMENORRHOEA [None]
  - CHEST PAIN [None]
  - DYSMENORRHOEA [None]
  - HYPOAESTHESIA [None]
  - PAIN [None]
  - PALPITATIONS [None]
  - VAGINAL HAEMORRHAGE [None]
